FAERS Safety Report 21623727 (Version 1)
Quarter: 2022Q4

REPORT INFORMATION
  Report Type: Spontaneous
  Country: US (occurrence: None)
  Receive Date: 20221119
  Receipt Date: 20221119
  Transmission Date: 20230113
  Serious: Yes (Death, Hospitalization)
  Sender: FDA-Public Use
  Company Number: None

PATIENT
  Age: 39 Year
  Sex: Male
  Weight: 109 kg

DRUGS (2)
  1. IPILIMUMAB [Suspect]
     Active Substance: IPILIMUMAB
     Dates: end: 20221027
  2. NIVOLUMAB [Suspect]
     Active Substance: NIVOLUMAB
     Dates: end: 20221027

REACTIONS (16)
  - Pain in extremity [None]
  - Abdominal distension [None]
  - Diarrhoea [None]
  - Deep vein thrombosis [None]
  - Tumour haemorrhage [None]
  - Malignant neoplasm progression [None]
  - Seizure [None]
  - Haemorrhage intracranial [None]
  - Brain oedema [None]
  - Cerebral mass effect [None]
  - Cerebral mass effect [None]
  - Hemiparesis [None]
  - Neurologic neglect syndrome [None]
  - Depressed level of consciousness [None]
  - Vasogenic cerebral oedema [None]
  - General physical health deterioration [None]

NARRATIVE: CASE EVENT DATE: 20221029
